FAERS Safety Report 9905354 (Version 1)
Quarter: 2014Q1

REPORT INFORMATION
  Report Type: Other
  Country: US (occurrence: US)
  Receive Date: 20140218
  Receipt Date: 20140218
  Transmission Date: 20141002
  Serious: No
  Sender: FDA-Public Use
  Company Number: US-ENDO PHARMACEUTICALS INC.-METO20120241

PATIENT
  Sex: Female

DRUGS (1)
  1. METOCLOPRAMIDE HYDROCHLORIDE [Suspect]
     Indication: PRODUCT USED FOR UNKNOWN INDICATION
     Dates: start: 200201, end: 200701

REACTIONS (6)
  - Tardive dyskinesia [Unknown]
  - Dystonia [Unknown]
  - Akathisia [Unknown]
  - Extrapyramidal disorder [Unknown]
  - Tremor [Unknown]
  - Dyskinesia [Unknown]
